FAERS Safety Report 19517382 (Version 2)
Quarter: 2021Q3

REPORT INFORMATION
  Report Type: Report from Study
  Country: US (occurrence: US)
  Receive Date: 20210712
  Receipt Date: 20210817
  Transmission Date: 20211014
  Serious: Yes (Other)
  Sender: FDA-Public Use
  Company Number: US-BIOGEN-2021BI01028266

PATIENT
  Age: 32 Year
  Sex: Female
  Weight: 106.24 kg

DRUGS (2)
  1. TECFIDERA [Suspect]
     Active Substance: DIMETHYL FUMARATE
     Indication: MULTIPLE SCLEROSIS
     Dosage: STARTING SYSTEM
     Route: 048
     Dates: start: 20180825
  2. TECFIDERA [Suspect]
     Active Substance: DIMETHYL FUMARATE
     Dosage: MAINTENANCE DOSE
     Route: 048

REACTIONS (1)
  - Epilepsy [Recovered/Resolved]

NARRATIVE: CASE EVENT DATE: 202103
